FAERS Safety Report 6843009-0 (Version None)
Quarter: 2010Q3

REPORT INFORMATION
  Report Type: 
  Country: None (occurrence: None)
  Receive Date: 20100709
  Receipt Date: 20100623
  Transmission Date: 20110219
  Serious: Yes (Life-Threatening, Hospitalization, Other)
  Sender: FDA-Public Use
  Company Number: 2010RR-34563

PATIENT
  Age: 59 Year
  Sex: Male

DRUGS (18)
  1. SIMVASTATIN [Suspect]
     Dosage: 20 MG, QD, ORAL
     Route: 048
  2. FUSIDIC ACID [Suspect]
     Indication: ARTHRITIS BACTERIAL
     Dosage: 500 MG TID
  3. CLARITHROMYCIN [Concomitant]
  4. GLICLAZIDE (GLICLAZIDE) [Concomitant]
  5. CEFTRIAXONE [Concomitant]
  6. FLOXACILLIN SODIUM [Concomitant]
  7. LANSOPRAZOLE [Concomitant]
  8. ALLOPURINOL [Concomitant]
  9. ATENOLOL [Concomitant]
  10. CLOPIDOGREL [Concomitant]
  11. DIPYRIDAMOLE [Concomitant]
  12. CALCICHEW (CALCIUM CARBONATE, COLECALCIFEROL) [Concomitant]
  13. ALFACALCIDOL (ALFACALCIDOL) [Concomitant]
  14. FOLIC ACID [Concomitant]
  15. OROVITE (VITAMIN A, VITAMIN B2, VITAMIN B6, VITAMIN B3, VITAMIN C, VIT [Concomitant]
  16. ERYTHROPOIETINE B (ERYTHROPOIETINE B) [Concomitant]
  17. IRON SUCROSE (IRON SUCROSE) [Concomitant]
  18. GENTAMICIN [Concomitant]

REACTIONS (6)
  - ALANINE AMINOTRANSFERASE INCREASED [None]
  - ARTHRITIS BACTERIAL [None]
  - ASPARTATE AMINOTRANSFERASE INCREASED [None]
  - DRUG INTERACTION [None]
  - PARAPARESIS [None]
  - RHABDOMYOLYSIS [None]
